FAERS Safety Report 4828438-9 (Version None)
Quarter: 2005Q4

REPORT INFORMATION
  Report Type: 
  Country: None (occurrence: None)
  Receive Date: 20051109
  Receipt Date: 20051027
  Transmission Date: 20060501
  Serious: Yes (Life-Threatening, Other)
  Sender: FDA-Public Use
  Company Number: 2005132739

PATIENT
  Age: 9 Year
  Sex: Female
  Weight: 26 kg

DRUGS (1)
  1. ATGAM [Suspect]
     Indication: BONE MARROW TRANSPLANT
     Dosage: 500 MG (1 IN 1 D), INTRAVENOUS
     Route: 042
     Dates: start: 20050917, end: 20050917

REACTIONS (11)
  - BRONCHOSPASM [None]
  - CHEST DISCOMFORT [None]
  - COUGH [None]
  - DIARRHOEA [None]
  - HYPOTENSION [None]
  - IRRITABILITY [None]
  - LOSS OF CONSCIOUSNESS [None]
  - PERIPHERAL CIRCULATORY FAILURE [None]
  - PULSE ABSENT [None]
  - RHONCHI [None]
  - SCREAMING [None]
